APPROVED DRUG PRODUCT: CYTOVENE
Active Ingredient: GANCICLOVIR
Strength: 500MG **Federal Register determination that product was not discontinued or withdrawn for safety or effectiveness reasons**
Dosage Form/Route: CAPSULE;ORAL
Application: N020460 | Product #002
Applicant: ROCHE PALO ALTO LLC
Approved: Dec 12, 1997 | RLD: Yes | RS: No | Type: DISCN